FAERS Safety Report 9835554 (Version 1)
Quarter: 2014Q1

REPORT INFORMATION
  Report Type: Spontaneous
  Country: FR (occurrence: FR)
  Receive Date: 20140122
  Receipt Date: 20140122
  Transmission Date: 20141002
  Serious: Yes (Disabling)
  Sender: FDA-Public Use
  Company Number: FR-TEVA-455560ISR

PATIENT
  Age: 70 Year
  Sex: Female

DRUGS (5)
  1. VINCRISTINE TEVA 0,1 POUR CENT (1 MG/1 ML) [Suspect]
     Route: 040
     Dates: start: 20121113, end: 20130401
  2. VELBE 10 MG [Suspect]
     Route: 040
     Dates: start: 20121113, end: 20130401
  3. CYCLOPHOSPHAMIDE [Concomitant]
     Route: 065
     Dates: start: 201211, end: 201304
  4. PROCARBAZINE 150 MG [Concomitant]
     Dates: start: 201211, end: 201304
  5. DOXORUBICINE [Concomitant]
     Route: 065

REACTIONS (1)
  - Neuropathy peripheral [Not Recovered/Not Resolved]
